FAERS Safety Report 10351978 (Version 2)
Quarter: 2014Q3

REPORT INFORMATION
  Report Type: Spontaneous
  Country: US (occurrence: US)
  Receive Date: 20140730
  Receipt Date: 20140730
  Transmission Date: 20150326
  Serious: No
  Sender: FDA-Public Use
  Company Number: US-ABBVIE-14P-163-1199773-00

PATIENT
  Age: 56 Year
  Sex: Female
  Weight: 69.92 kg

DRUGS (4)
  1. SYNTHROID [Suspect]
     Active Substance: LEVOTHYROXINE SODIUM
     Indication: HYPOTHYROIDISM
     Route: 048
     Dates: start: 20140201
  2. SYNTHROID [Suspect]
     Active Substance: LEVOTHYROXINE SODIUM
     Route: 048
     Dates: start: 20140120, end: 20140131
  3. SYNTHROID [Suspect]
     Active Substance: LEVOTHYROXINE SODIUM
     Route: 048
  4. DYRENIUM [Concomitant]
     Active Substance: TRIAMTERENE
     Indication: ENDOLYMPHATIC HYDROPS

REACTIONS (8)
  - Heart rate irregular [Recovered/Resolved]
  - Dysphagia [Recovering/Resolving]
  - Nervousness [Recovering/Resolving]
  - Fatigue [Not Recovered/Not Resolved]
  - Cardiac disorder [Recovered/Resolved]
  - Joint swelling [Not Recovered/Not Resolved]
  - Heart rate increased [Recovered/Resolved]
  - Arthralgia [Not Recovered/Not Resolved]

NARRATIVE: CASE EVENT DATE: 201312
